FAERS Safety Report 9156784 (Version 1)
Quarter: 2013Q1

REPORT INFORMATION
  Report Type: Spontaneous
  Country: DK (occurrence: None)
  Receive Date: 20130208
  Receipt Date: 20130208
  Transmission Date: 20140127
  Serious: Yes (Hospitalization)
  Sender: FDA-Public Use
  Company Number: 2013MA0000864

PATIENT
  Age: 46 Year
  Sex: Male

DRUGS (5)
  1. RAMIPRIL [Suspect]
     Route: 048
     Dates: start: 20120415, end: 20120417
  2. TRAMADOL HYDROCHLORIDE TABLETS, 50 MG (PUREPAC) (TRAMADOL) [Suspect]
     Route: 048
     Dates: start: 20120415, end: 20120420
  3. HYDROCHLOROTHIAZIDE [Suspect]
     Route: 048
     Dates: start: 20120413, end: 20120418
  4. CRESTOR [Suspect]
     Route: 048
     Dates: start: 20120413, end: 20120418
  5. BACTRIM [Suspect]
     Dosage: ; QD; PO
     Dates: start: 20120406, end: 20120413

REACTIONS (2)
  - Angioedema [None]
  - Dermatitis bullous [None]
